FAERS Safety Report 7403349-3 (Version None)
Quarter: 2011Q2

REPORT INFORMATION
  Report Type: 
  Country: None (occurrence: None)
  Receive Date: 20110408
  Receipt Date: 20110330
  Transmission Date: 20111010
  Serious: Yes (Hospitalization)
  Sender: FDA-Public Use
  Company Number: A0774399A

PATIENT
  Age: 46 Year
  Sex: Male

DRUGS (9)
  1. PRINIVIL [Concomitant]
  2. GLYBURIDE [Concomitant]
  3. LIPITOR [Concomitant]
  4. AVANDIA [Suspect]
     Dosage: 8MG PER DAY
     Route: 048
     Dates: start: 20050228, end: 20070412
  5. MICRONASE [Concomitant]
  6. CIALIS [Concomitant]
  7. AVANDAMET [Suspect]
     Route: 048
     Dates: start: 20050211, end: 20060101
  8. METFORMIN [Concomitant]
     Dates: end: 20061105
  9. ZOLOFT [Concomitant]

REACTIONS (3)
  - ACUTE MYOCARDIAL INFARCTION [None]
  - MYOCARDIAL ISCHAEMIA [None]
  - ARTERIOSCLEROSIS CORONARY ARTERY [None]
